FAERS Safety Report 9788017 (Version 1)
Quarter: 2013Q4

REPORT INFORMATION
  Report Type: Report from Study
  Country: FR (occurrence: FR)
  Receive Date: 20131230
  Receipt Date: 20131230
  Transmission Date: 20140711
  Serious: Yes (Hospitalization)
  Sender: FDA-Public Use
  Company Number: FR-MALLINCKRODT-T201305176

PATIENT
  Age: 22 Year
  Sex: Female

DRUGS (1)
  1. OPTIJECT 350 [Suspect]
     Indication: COMPUTERISED TOMOGRAM
     Dosage: 50 ML, 1.5ML/SEC.
     Route: 042
     Dates: start: 20131016, end: 20131016

REACTIONS (3)
  - Type I hypersensitivity [Recovered/Resolved]
  - Abdominal pain [Recovered/Resolved]
  - Pyrexia [Recovered/Resolved]
